FAERS Safety Report 9747859 (Version 1)
Quarter: 2013Q4

REPORT INFORMATION
  Report Type: Spontaneous
  Country: US (occurrence: None)
  Receive Date: 20131211
  Receipt Date: 20131211
  Transmission Date: 20140711
  Serious: Yes (Disabling)
  Sender: FDA-Public Use
  Company Number: None

PATIENT
  Age: 63 Year
  Sex: Male
  Weight: 83.92 kg

DRUGS (4)
  1. LEVOFLOXACIN [Suspect]
     Indication: RESPIRATORY TRACT INFECTION
     Dosage: 500 MG 10 PACK ONCE A DAY ORALLY
     Route: 048
     Dates: start: 20130513, end: 20130523
  2. ATENOLOL [Concomitant]
  3. MULTI-VIT [Concomitant]
  4. FISH OIL [Concomitant]

REACTIONS (3)
  - Joint stiffness [None]
  - Joint lock [None]
  - Arthralgia [None]
